FAERS Safety Report 5212626-6 (Version None)
Quarter: 2006Q4

REPORT INFORMATION
  Report Type: 
  Country: None (occurrence: None)
  Receive Date: 20061115
  Receipt Date: 20060913
  Transmission Date: 20070319
  Serious: No
  Sender: FDA-Public Use
  Company Number: 200617844US

PATIENT
  Age: 69 Year
  Sex: Male

DRUGS (23)
  1. APIDRA [Suspect]
     Indication: DIABETES MELLITUS
     Dosage: 6U
     Dates: start: 20060912
  2. BYETTA [Suspect]
  3. LANTUS [Concomitant]
  4. HUMALOG [Suspect]
  5. GLIMEPIRIDE [Concomitant]
  6. WELLBUTRIN [Concomitant]
  7. TOPAMAX [Concomitant]
  8. POTASSIUM ACETATE [Concomitant]
  9. TAMSULOSIN HCL [Concomitant]
  10. PANTOPRAZOLE SODIUM [Concomitant]
  11. EPLERENONE (INSPRA USA) [Concomitant]
  12. CILOSTAZOL [Concomitant]
  13. ALLOPURINOL SODIUM [Concomitant]
  14. BUMETANIDE [Concomitant]
  15. CELEBREX [Concomitant]
  16. ATENOLOL [Concomitant]
  17. PARACETAMOL, DEXTROPROPOXYPHENE NAPSILATE (DARVOCET - N) [Concomitant]
  18. ROSUVASTATIN (CRESTOR 01588601) [Concomitant]
  19. ACETYLSALICYLIC ACID SRT [Concomitant]
  20. CLOPIDOGREL [Concomitant]
  21. BIMATOPROST (LUMIGAN) [Concomitant]
  22. CIPRODEX [Concomitant]
  23. ATROPINE SULFATE, DIPHENOXYLATE HYDROCHLORIDE (LOMOTIL) [Concomitant]

REACTIONS (2)
  - DIARRHOEA [None]
  - ERUCTATION [None]
